FAERS Safety Report 9172003 (Version 2)
Quarter: 2013Q2

REPORT INFORMATION
  Report Type: Spontaneous
  Country: US (occurrence: US)
  Receive Date: 20130319
  Receipt Date: 20130507
  Transmission Date: 20140414
  Serious: Yes (Other)
  Sender: FDA-Public Use
  Company Number: US-BAYER-2013-031744

PATIENT
  Age: 27 Year
  Sex: Female

DRUGS (2)
  1. MIRENA [Suspect]
     Indication: CONTRACEPTION
     Dosage: UNK
     Dates: start: 2007, end: 20130309
  2. SUPPLEMENTS [Concomitant]

REACTIONS (43)
  - Feeling abnormal [Not Recovered/Not Resolved]
  - Hypersomnia [Not Recovered/Not Resolved]
  - Asthenia [Not Recovered/Not Resolved]
  - Hot flush [Not Recovered/Not Resolved]
  - Cold sweat [Not Recovered/Not Resolved]
  - Amenorrhoea [Recovered/Resolved]
  - Vaginal haemorrhage [Not Recovered/Not Resolved]
  - Abdominal pain upper [Not Recovered/Not Resolved]
  - Device expulsion [None]
  - Vaginal haemorrhage [Not Recovered/Not Resolved]
  - Panic attack [Not Recovered/Not Resolved]
  - Anxiety [Not Recovered/Not Resolved]
  - Feeling of despair [Not Recovered/Not Resolved]
  - Palpitations [Not Recovered/Not Resolved]
  - Depression [None]
  - Anger [None]
  - Mood swings [None]
  - Crying [None]
  - Dissociative disorder [None]
  - Nervousness [None]
  - Pain [Not Recovered/Not Resolved]
  - Morose [None]
  - Malaise [None]
  - Fatigue [None]
  - Emotional poverty [None]
  - Acne [Not Recovered/Not Resolved]
  - Heart rate irregular [Not Recovered/Not Resolved]
  - Activities of daily living impaired [None]
  - Libido decreased [None]
  - Female orgasmic disorder [None]
  - Chronic sinusitis [Not Recovered/Not Resolved]
  - Device misuse [None]
  - Headache [None]
  - Hypersomnia [None]
  - Dizziness [None]
  - Breast tenderness [None]
  - Urinary tract infection [None]
  - Abdominal pain [None]
  - Constipation [None]
  - Eye pruritus [None]
  - Weight increased [None]
  - Hair disorder [None]
  - Rash [None]
